FAERS Safety Report 18107656 (Version 4)
Quarter: 2020Q4

REPORT INFORMATION
  Report Type: Spontaneous
  Country: CO (occurrence: CO)
  Receive Date: 20200804
  Receipt Date: 20201124
  Transmission Date: 20210113
  Serious: Yes (Death, Hospitalization, Other)
  Sender: FDA-Public Use
  Company Number: CO-PFIZER INC-2020288871

PATIENT
  Age: 52 Year
  Sex: Female

DRUGS (1)
  1. REAMPLA [Suspect]
     Active Substance: PALBOCICLIB
     Indication: BREAST CANCER METASTATIC
     Dosage: 100 MG
     Route: 048
     Dates: start: 202001, end: 2020

REACTIONS (14)
  - Death [Fatal]
  - Anaemia [Not Recovered/Not Resolved]
  - Incontinence [Not Recovered/Not Resolved]
  - Neoplasm progression [Unknown]
  - Quadriplegia [Not Recovered/Not Resolved]
  - Loss of consciousness [Not Recovered/Not Resolved]
  - Vertebral column mass [Not Recovered/Not Resolved]
  - Yellow skin [Not Recovered/Not Resolved]
  - Gastric perforation [Not Recovered/Not Resolved]
  - Mobility decreased [Recovering/Resolving]
  - Disorganised speech [Not Recovered/Not Resolved]
  - Depressed mood [Unknown]
  - Gastritis [Not Recovered/Not Resolved]
  - General physical health deterioration [Not Recovered/Not Resolved]

NARRATIVE: CASE EVENT DATE: 2020
